FAERS Safety Report 8294492-8 (Version None)
Quarter: 2012Q2

REPORT INFORMATION
  Report Type: 
  Country: None (occurrence: None)
  Receive Date: 20120418
  Receipt Date: 20120409
  Transmission Date: 20120825
  Serious: Yes (Other)
  Sender: FDA-Public Use
  Company Number: PHHY2012MX031097

PATIENT
  Sex: Female

DRUGS (4)
  1. CHLORTHALIDONE [Concomitant]
     Indication: FLUID RETENTION
  2. DIOVAN [Suspect]
     Indication: HYPERTENSION
     Dosage: 320 MG, DAILY
     Dates: start: 20050401
  3. COMBIVENT [Concomitant]
  4. SPIRIVA [Concomitant]

REACTIONS (2)
  - VARICOSE VEIN [None]
  - TACHYCARDIA [None]
